FAERS Safety Report 4477277-X (Version None)
Quarter: 2004Q4

REPORT INFORMATION
  Report Type: 
  Country: None (occurrence: None)
  Receive Date: 20041018
  Receipt Date: 20040720
  Transmission Date: 20050328
  Serious: Yes (Hospitalization)
  Sender: FDA-Public Use
  Company Number: US-MERCK-0407USA01746

PATIENT
  Age: 52 Year
  Sex: Male
  Weight: 91 kg

DRUGS (5)
  1. LIPITOR [Concomitant]
     Route: 065
  2. TRANXENE [Concomitant]
     Route: 065
  3. PROZAC [Concomitant]
     Route: 065
  4. ZANTAC [Concomitant]
     Route: 065
  5. VIOXX [Suspect]
     Indication: ARTHRITIS
     Route: 048
     Dates: start: 20020101, end: 20030201

REACTIONS (4)
  - ACUTE MYOCARDIAL INFARCTION [None]
  - CORONARY ARTERY ATHEROSCLEROSIS [None]
  - EMOTIONAL DISTRESS [None]
  - OBSTRUCTIVE AIRWAYS DISORDER [None]
